FAERS Safety Report 7269695-1 (Version None)
Quarter: 2011Q1

REPORT INFORMATION
  Report Type: 
  Country: None (occurrence: None)
  Receive Date: 20110202
  Receipt Date: 20110202
  Transmission Date: 20110831
  Serious: No
  Sender: FDA-Public Use
  Company Number: JP-JNJFOC-20110106376

PATIENT
  Sex: Female
  Weight: 48 kg

DRUGS (5)
  1. GASTER D [Concomitant]
     Indication: PROPHYLAXIS
     Route: 048
  2. CELECOXIB [Suspect]
     Indication: PAIN
     Route: 048
  3. MAGLAX [Concomitant]
     Route: 048
  4. PRORENAL [Concomitant]
     Indication: PAIN
     Route: 048
  5. DUROTEP MT [Suspect]
     Indication: PAIN
     Route: 062

REACTIONS (1)
  - CONSTIPATION [None]
